FAERS Safety Report 19043129 (Version 1)
Quarter: 2021Q1

REPORT INFORMATION
  Report Type: Spontaneous
  Country: US (occurrence: US)
  Receive Date: 20210322
  Receipt Date: 20210322
  Transmission Date: 20210420
  Serious: No
  Sender: FDA-Public Use
  Company Number: None

PATIENT
  Age: 31 Year
  Sex: Female

DRUGS (1)
  1. MAVYRET [Suspect]
     Active Substance: GLECAPREVIR\PIBRENTASVIR
     Dosage: OTHER DOSE:300?120; DAILY ORAL?
     Route: 048
     Dates: start: 202102

REACTIONS (4)
  - Skin disorder [None]
  - Fatigue [None]
  - Rash [None]
  - Nausea [None]

NARRATIVE: CASE EVENT DATE: 20210320
